FAERS Safety Report 25861341 (Version 4)
Quarter: 2025Q4

REPORT INFORMATION
  Report Type: Spontaneous
  Country: JP (occurrence: JP)
  Receive Date: 20250929
  Receipt Date: 20251205
  Transmission Date: 20260117
  Serious: Yes (Other)
  Sender: SANOFI AVENTIS
  Company Number: JP-SA-2025SA289410

PATIENT
  Age: 48 Year
  Sex: Male

DRUGS (2)
  1. DUPIXENT [Suspect]
     Active Substance: DUPILUMAB
     Indication: Chronic eosinophilic rhinosinusitis
     Route: 058
  2. DUPIXENT [Suspect]
     Active Substance: DUPILUMAB
     Indication: Nasal polyps

REACTIONS (5)
  - Cerebral infarction [Unknown]
  - Sensory disturbance [Recovering/Resolving]
  - Thrombosis [Unknown]
  - Hypersensitivity vasculitis [Unknown]
  - Eosinophil count increased [Recovering/Resolving]
